FAERS Safety Report 8821437 (Version 2)
Quarter: 2015Q2

REPORT INFORMATION
  Report Type: Report from Study
  Country: US (occurrence: US)
  Receive Date: 20121002
  Receipt Date: 20150504
  Transmission Date: 20150821
  Serious: Yes (Death, Other)
  Sender: FDA-Public Use
  Company Number: US-ROCHE-1131525

PATIENT
  Age: 86 Year
  Sex: Female

DRUGS (41)
  1. PREDNISONE. [Concomitant]
     Active Substance: PREDNISONE
     Route: 048
  2. TYLENOL [Concomitant]
     Active Substance: ACETAMINOPHEN
     Route: 048
  3. AZITHROMYCIN [Concomitant]
     Active Substance: AZITHROMYCIN ANHYDROUS
  4. VERSED [Concomitant]
     Active Substance: MIDAZOLAM HYDROCHLORIDE
     Route: 042
  5. RITUXAN [Suspect]
     Active Substance: RITUXIMAB
     Route: 042
  6. ROCEPHIN [Concomitant]
     Active Substance: CEFTRIAXONE SODIUM
     Route: 042
  7. LEVAQUIN [Concomitant]
     Active Substance: LEVOFLOXACIN
     Route: 065
  8. FORTAZ [Concomitant]
     Active Substance: CEFTAZIDIME SODIUM
     Route: 042
  9. BECONASE AQ [Concomitant]
     Active Substance: BECLOMETHASONE DIPROPIONATE MONOHYDRATE
     Dosage: TWO SPRAYS NOSTRILS
     Route: 065
  10. POTASSIUM CHLORIDE. [Concomitant]
     Active Substance: POTASSIUM CHLORIDE
     Route: 065
  11. PRINIVIL [Concomitant]
     Active Substance: LISINOPRIL
     Route: 048
  12. ATIVAN [Suspect]
     Active Substance: LORAZEPAM
     Indication: PRODUCT USED FOR UNKNOWN INDICATION
     Route: 065
  13. NOVANTRONE [Concomitant]
     Active Substance: MITOXANTRONE HYDROCHLORIDE
     Route: 042
  14. PREDNISONE. [Concomitant]
     Active Substance: PREDNISONE
     Route: 048
  15. ARANESP [Concomitant]
     Active Substance: DARBEPOETIN ALFA
     Route: 058
  16. TYLENOL [Concomitant]
     Active Substance: ACETAMINOPHEN
     Route: 048
  17. ALLOPURINOL. [Concomitant]
     Active Substance: ALLOPURINOL
     Route: 065
  18. POTASSIUM CHLORIDE. [Concomitant]
     Active Substance: POTASSIUM CHLORIDE
     Route: 065
  19. DECADRON [Concomitant]
     Active Substance: DEXAMETHASONE
     Route: 042
  20. K-DUR [Concomitant]
     Active Substance: POTASSIUM CHLORIDE
     Route: 048
  21. KEFLEX [Concomitant]
     Active Substance: CEPHALEXIN
     Route: 048
  22. CYCLOPHOSPHAMIDE. [Concomitant]
     Active Substance: CYCLOPHOSPHAMIDE
     Route: 042
  23. CYCLOPHOSPHAMIDE. [Concomitant]
     Active Substance: CYCLOPHOSPHAMIDE
     Route: 042
  24. ZOFRAN [Concomitant]
     Active Substance: ONDANSETRON HYDROCHLORIDE
     Route: 042
  25. HUMIBID LA [Concomitant]
     Active Substance: GUAIFENESIN
     Route: 048
  26. ZANTAC [Concomitant]
     Active Substance: RANITIDINE HYDROCHLORIDE
     Route: 048
  27. CEFTRIAXONE SODIUM. [Concomitant]
     Active Substance: CEFTRIAXONE SODIUM
     Route: 065
  28. PREDNISONE. [Concomitant]
     Active Substance: PREDNISONE
     Route: 048
  29. POTASSIUM CHLORIDE. [Concomitant]
     Active Substance: POTASSIUM CHLORIDE
     Route: 058
  30. BENADRYL [Concomitant]
     Active Substance: DIPHENHYDRAMINE HYDROCHLORIDE
     Route: 048
  31. RITUXAN [Suspect]
     Active Substance: RITUXIMAB
     Indication: MALIGNANT LYMPHOID NEOPLASM
     Route: 042
     Dates: start: 20020502
  32. ZITHROMAX [Concomitant]
     Active Substance: AZITHROMYCIN DIHYDRATE
     Route: 042
     Dates: start: 20021009
  33. SOLU-MEDROL [Concomitant]
     Active Substance: METHYLPREDNISOLONE SODIUM SUCCINATE
     Route: 042
  34. VINCRISTINE [Concomitant]
     Active Substance: VINCRISTINE
     Route: 042
  35. PREDNISONE. [Concomitant]
     Active Substance: PREDNISONE
     Route: 048
  36. NEUPOGEN [Concomitant]
     Active Substance: FILGRASTIM
     Route: 058
  37. XYLOCAINE [Concomitant]
     Active Substance: LIDOCAINE HYDROCHLORIDE
  38. CYCLOPHOSPHAMIDE. [Concomitant]
     Active Substance: CYCLOPHOSPHAMIDE
     Route: 042
  39. NEULASTA [Concomitant]
     Active Substance: PEGFILGRASTIM
     Route: 058
  40. PRILOSEC [Concomitant]
     Active Substance: OMEPRAZOLE MAGNESIUM
     Route: 048
  41. NAPROSYN [Concomitant]
     Active Substance: NAPROXEN
     Route: 065

REACTIONS (38)
  - Death [Fatal]
  - Headache [Recovered/Resolved]
  - Asthenia [Recovering/Resolving]
  - Rales [Unknown]
  - Hyperplasia [Unknown]
  - Diverticulum intestinal [Unknown]
  - Lung disorder [Unknown]
  - Upper respiratory tract infection [Unknown]
  - Ataxia [Unknown]
  - Percussion test abnormal [Unknown]
  - Blood lactate dehydrogenase increased [Unknown]
  - Erythema [Unknown]
  - Sinusitis [Unknown]
  - Dizziness [Unknown]
  - Confusional state [Unknown]
  - Haemoglobin decreased [Unknown]
  - Lymphoma [Unknown]
  - Arthralgia [Unknown]
  - Hypoxia [Unknown]
  - Anaemia [Unknown]
  - Alveolitis allergic [Unknown]
  - Pyrexia [Recovering/Resolving]
  - Dehydration [Unknown]
  - Sputum purulent [Unknown]
  - Deafness [Unknown]
  - Dyspnoea [Unknown]
  - Pleural effusion [Unknown]
  - Conjunctival pallor [Unknown]
  - Balance disorder [Unknown]
  - Lymphadenopathy [Unknown]
  - Beta 2 microglobulin increased [Unknown]
  - Gait disturbance [Unknown]
  - Constipation [Unknown]
  - Back pain [Unknown]
  - Leukocytosis [Recovering/Resolving]
  - Neutropenia [Unknown]
  - Cervix enlargement [Unknown]
  - Atelectasis [Unknown]

NARRATIVE: CASE EVENT DATE: 20020717
